FAERS Safety Report 8079327 (Version 2)
Quarter: 2013Q2

REPORT INFORMATION
  Report Type: Spontaneous
  Country: US (occurrence: US)
  Receive Date: 20110808
  Receipt Date: 20130506
  Transmission Date: 20140414
  Serious: Yes (Hospitalization)
  Sender: FDA-Public Use
  Company Number: US-BIOGENIDEC-2011BI028820

PATIENT
  Age: 53 Year
  Sex: Female

DRUGS (3)
  1. TYSABRI [Suspect]
     Indication: MULTIPLE SCLEROSIS
     Route: 042
     Dates: start: 20071112
  2. ADDERALL [Concomitant]
     Indication: FATIGUE
  3. PROVIGIL [Concomitant]
     Indication: FATIGUE

REACTIONS (3)
  - Herpes zoster [Recovered/Resolved]
  - Fatigue [Recovered/Resolved]
  - Weight loss poor [Recovered/Resolved]
